FAERS Safety Report 6836945-2 (Version None)
Quarter: 2010Q3

REPORT INFORMATION
  Report Type: 
  Country: None (occurrence: None)
  Receive Date: 20100713
  Receipt Date: 20070502
  Transmission Date: 20110219
  Serious: No
  Sender: FDA-Public Use
  Company Number: US-PFIZER INC-2007036183

PATIENT
  Sex: Female

DRUGS (10)
  1. CHANTIX [Suspect]
     Indication: SMOKING CESSATION THERAPY
     Route: 048
     Dates: start: 20070419
  2. PLAVIX [Concomitant]
  3. TOPROL-XL [Concomitant]
     Indication: HYPERTENSION
  4. NITROGLYCERIN [Concomitant]
  5. SEROQUEL [Concomitant]
  6. EFFEXOR [Concomitant]
  7. GLUCOPHAGE [Concomitant]
  8. LISINOPRIL [Concomitant]
  9. ACIPHEX [Concomitant]
  10. SIMVASTATIN [Concomitant]

REACTIONS (2)
  - NAUSEA [None]
  - VOMITING [None]
